FAERS Safety Report 8775267 (Version 1)
Quarter: 2012Q4

REPORT INFORMATION
  Report Type: Report from Study
  Country: CA (occurrence: CA)
  Receive Date: 20120910
  Receipt Date: 20120910
  Transmission Date: 20130627
  Serious: Yes (Other)
  Sender: FDA-Public Use
  Company Number: CA-ROCHE-1117124

PATIENT
  Age: 74 Year

DRUGS (1)
  1. XELODA [Suspect]
     Indication: COLORECTAL CANCER
     Route: 065
     Dates: start: 20120127, end: 20120403

REACTIONS (2)
  - Adverse reaction [Unknown]
  - Toxicity to various agents [Unknown]
